FAERS Safety Report 23109539 (Version 1)
Quarter: 2023Q4

REPORT INFORMATION
  Report Type: Spontaneous
  Country: US (occurrence: US)
  Receive Date: 20231026
  Receipt Date: 20231026
  Transmission Date: 20240109
  Serious: Yes (Other)
  Sender: FDA-Public Use
  Company Number: US-INTRA-CELLULAR THERAPIES, INC.-2023ICT01456

PATIENT
  Sex: Male
  Weight: 74.83 kg

DRUGS (7)
  1. CAPLYTA [Suspect]
     Active Substance: LUMATEPERONE
     Indication: Bipolar disorder
     Dosage: 42 MG, 1X/DAY EVERY NIGHT
     Route: 048
     Dates: start: 20230821
  2. WELLBUTRIN [Concomitant]
     Active Substance: BUPROPION HYDROCHLORIDE
     Dosage: 300 MG, 1X/DAY
  3. ADDERALL [Concomitant]
     Active Substance: AMPHETAMINE ASPARTATE\AMPHETAMINE SULFATE\DEXTROAMPHETAMINE SACCHARATE\DEXTROAMPHETAMINE SULFATE
     Dosage: 30 MG, 1X/DAY
  4. AMBIEN [Concomitant]
     Active Substance: ZOLPIDEM TARTRATE
     Dosage: 10 MG, 1X/DAY EVERY NIGHT
  5. DISULFIRAM [Concomitant]
     Active Substance: DISULFIRAM
     Dosage: 250 MG, 1X/DAY
  6. XANAX [Concomitant]
     Active Substance: ALPRAZOLAM
     Dosage: UP TO 1.5 MG, 1X/DAY AS NEEDED
  7. CLONIDINE [Concomitant]
     Active Substance: CLONIDINE
     Dosage: 0.1 MG, 1X/DAY AS NEEDED

REACTIONS (5)
  - Pneumonitis [Unknown]
  - Cough [Recovering/Resolving]
  - Choking sensation [Recovering/Resolving]
  - Chest injury [Not Recovered/Not Resolved]
  - Musculoskeletal chest pain [Unknown]

NARRATIVE: CASE EVENT DATE: 20230101
